FAERS Safety Report 4852983-3 (Version None)
Quarter: 2005Q4

REPORT INFORMATION
  Report Type: 
  Country: None (occurrence: None)
  Receive Date: 20051212
  Receipt Date: 20051201
  Transmission Date: 20060501
  Serious: Yes (Hospitalization)
  Sender: FDA-Public Use
  Company Number: OMPQ-NO-0512S-1479

PATIENT
  Age: 66 Year
  Sex: Male

DRUGS (1)
  1. OMNIPAQUE 140 [Suspect]
     Indication: OESOPHAGEAL CARCINOMA
     Dosage: 98 ML SINGLE DOSE IV
     Route: 042
     Dates: start: 20051201, end: 20051201

REACTIONS (6)
  - BLOOD PRESSURE SYSTOLIC DECREASED [None]
  - DYSPNOEA [None]
  - HYPOAESTHESIA [None]
  - PARAESTHESIA [None]
  - PROCEDURAL COMPLICATION [None]
  - VOMITING [None]
